FAERS Safety Report 7981597-1 (Version None)
Quarter: 2011Q4

REPORT INFORMATION
  Report Type: 
  Country: None (occurrence: None)
  Receive Date: 20111215
  Receipt Date: 20111208
  Transmission Date: 20120403
  Serious: Yes (Other)
  Sender: FDA-Public Use
  Company Number: US-UCBSA-047411

PATIENT
  Age: 59 Year
  Sex: Female

DRUGS (1)
  1. CIMZIA [Suspect]
     Indication: RHEUMATOID ARTHRITIS
     Dosage: HELD IT FOR A WEEK
     Route: 058
     Dates: start: 20101222

REACTIONS (5)
  - VULVOVAGINAL CANDIDIASIS [None]
  - ORAL CANDIDIASIS [None]
  - BRONCHITIS [None]
  - COUGH [None]
  - MALAISE [None]
